FAERS Safety Report 7645716-9 (Version None)
Quarter: 2011Q3

REPORT INFORMATION
  Report Type: 
  Country: None (occurrence: None)
  Receive Date: 20110729
  Receipt Date: 20110720
  Transmission Date: 20111222
  Serious: Yes (Hospitalization, Other)
  Sender: FDA-Public Use
  Company Number: US-ASTRAZENECA-2007UW28985

PATIENT
  Age: 15043 Day
  Sex: Female
  Weight: 100.7 kg

DRUGS (20)
  1. TOPROL-XL [Concomitant]
     Dates: start: 20050101
  2. PRILOSEC [Concomitant]
     Indication: GASTRITIS
     Dates: start: 20010122
  3. SEROQUEL [Suspect]
     Dosage: 300 MG AT BEDTIME, IN THE MORNING
     Route: 048
     Dates: start: 20030825
  4. ACYCLOVIR [Concomitant]
     Indication: RASH
     Dates: start: 20030127
  5. EFFEXOR XR [Concomitant]
     Indication: DEPRESSION
     Dates: start: 20030825
  6. PROVIGIL [Concomitant]
     Dates: start: 20031107
  7. TOPROL-XL [Concomitant]
     Dates: start: 20060101
  8. TOPROL-XL [Concomitant]
     Dates: start: 20070122
  9. SOMA [Concomitant]
     Dates: start: 20000203
  10. ACYCLOVIR [Concomitant]
     Indication: HERPES ZOSTER
     Dates: start: 20030127
  11. EFFEXOR XR [Concomitant]
     Dates: start: 20060101
  12. PRILOSEC [Concomitant]
     Dates: start: 20010222
  13. EFFEXOR XR [Concomitant]
     Dates: start: 20050101
  14. EFFEXOR XR [Concomitant]
     Dates: start: 20070122
  15. NEURONTIN [Concomitant]
     Dates: start: 20030825
  16. SEROQUEL [Suspect]
     Indication: SLEEP APNOEA SYNDROME
     Dosage: VARIOUS DOSES INCLUDING 300 MG
     Route: 048
     Dates: start: 20010101, end: 20070101
  17. SEROQUEL [Suspect]
     Route: 048
     Dates: start: 20070122
  18. TOPROL-XL [Concomitant]
     Dosage: 25 MG QHS TO 50 MG
     Dates: start: 20030127
  19. PREMARIN [Concomitant]
     Dates: start: 20000104
  20. PAXIL [Concomitant]
     Indication: DEPRESSION
     Dates: start: 20000104

REACTIONS (9)
  - NEUROPATHY PERIPHERAL [None]
  - ASTHMA [None]
  - CHRONIC OBSTRUCTIVE PULMONARY DISEASE [None]
  - BRONCHITIS [None]
  - UPPER RESPIRATORY TRACT INFECTION [None]
  - MUSCULOSKELETAL DISCOMFORT [None]
  - TYPE 2 DIABETES MELLITUS [None]
  - SINUSITIS [None]
  - LUNG DISORDER [None]
